FAERS Safety Report 5640609-0 (Version None)
Quarter: 2008Q1

REPORT INFORMATION
  Report Type: 
  Country: None (occurrence: None)
  Receive Date: 20080227
  Receipt Date: 20080218
  Transmission Date: 20080703
  Serious: Yes (Hospitalization)
  Sender: FDA-Public Use
  Company Number: PHRM2008FR00855

PATIENT
  Age: 87 Year
  Sex: Female

DRUGS (4)
  1. TAREG [Suspect]
     Dosage: 40 MG, QD
     Route: 048
     Dates: end: 20080109
  2. KERLONE [Concomitant]
     Indication: HYPERTENSION
     Dosage: 1 DF, QD
     Route: 048
     Dates: start: 20050101
  3. CHONDROSULF [Concomitant]
     Indication: OSTEOARTHRITIS
     Dosage: 3 DF, QD
     Route: 048
  4. ASPIRIN [Concomitant]
     Dosage: 1 DF, QD
     Route: 048

REACTIONS (8)
  - AREFLEXIA [None]
  - DIZZINESS [None]
  - DRY SKIN [None]
  - FALL [None]
  - LEFT VENTRICULAR HYPERTROPHY [None]
  - MALAISE [None]
  - NAUSEA [None]
  - ORTHOSTATIC HYPOTENSION [None]
